FAERS Safety Report 25267760 (Version 2)
Quarter: 2025Q2

REPORT INFORMATION
  Report Type: Report from Study
  Country: US (occurrence: US)
  Receive Date: 20250505
  Receipt Date: 20250602
  Transmission Date: 20250717
  Serious: Yes (Other)
  Sender: ALEXION PHARMACEUTICALS
  Company Number: US-AstraZeneca-CH-00857927A

PATIENT

DRUGS (1)
  1. ULTOMIRIS [Suspect]
     Active Substance: RAVULIZUMAB-CWVZ
     Indication: Paroxysmal nocturnal haemoglobinuria

REACTIONS (7)
  - Cataract [Unknown]
  - Brain fog [Unknown]
  - Memory impairment [Unknown]
  - Headache [Unknown]
  - Weight increased [Unknown]
  - Breast enlargement [Unknown]
  - Dysgeusia [Unknown]
